FAERS Safety Report 14284607 (Version 1)
Quarter: 2017Q4

REPORT INFORMATION
  Report Type: Report from Study
  Country: BR (occurrence: BR)
  Receive Date: 20171214
  Receipt Date: 20171214
  Transmission Date: 20180321
  Serious: Yes (Other)
  Sender: FDA-Public Use
  Company Number: BR-JNJFOC-20171208321

PATIENT

DRUGS (3)
  1. INFLIXIMAB, RECOMBINANT [Suspect]
     Active Substance: INFLIXIMAB
     Indication: CROHN^S DISEASE
     Route: 042
  2. AZATHIOPRINE. [Concomitant]
     Active Substance: AZATHIOPRINE
     Route: 065
  3. MERCAPTOPURINE. [Concomitant]
     Active Substance: MERCAPTOPURINE
     Route: 065

REACTIONS (24)
  - Epididymitis [Unknown]
  - Herpes virus infection [Unknown]
  - Sinusitis [Unknown]
  - Hepatitis B reactivation [Unknown]
  - Optic neuritis [Unknown]
  - Pneumonia [Unknown]
  - Upper respiratory tract infection [Unknown]
  - Pseudomembranous colitis [Unknown]
  - Tuberculosis [Unknown]
  - Arthralgia [Unknown]
  - Febrile neutropenia [Unknown]
  - Onychomycosis [Unknown]
  - Folliculitis [Unknown]
  - Diarrhoea infectious [Unknown]
  - Infusion related reaction [Unknown]
  - Endocarditis bacterial [Unknown]
  - Papilloma viral infection [Unknown]
  - Nausea [Unknown]
  - Intestinal perforation [Unknown]
  - Candida infection [Unknown]
  - Skin lesion [Unknown]
  - Hordeolum [Unknown]
  - Neuropathy peripheral [Unknown]
  - Urinary tract infection [Unknown]
